FAERS Safety Report 10920024 (Version 1)
Quarter: 2015Q1

REPORT INFORMATION
  Report Type: Spontaneous
  Country: GB (occurrence: GB)
  Receive Date: 20150317
  Receipt Date: 20150317
  Transmission Date: 20150721
  Serious: Yes (Other)
  Sender: FDA-Public Use
  Company Number: GB-ACCORD-029289

PATIENT
  Age: 78 Year
  Sex: Female
  Weight: 92.94 kg

DRUGS (4)
  1. CLOPIDOGREL [Suspect]
     Active Substance: CLOPIDOGREL BISULFATE
     Indication: TRANSIENT ISCHAEMIC ATTACK
     Route: 048
     Dates: start: 20150208
  2. LETROZOLE. [Concomitant]
     Active Substance: LETROZOLE
  3. CALCIUM/ERGOCALCIFEROL [Concomitant]
  4. ALENDRONATE SODIUM/ALENDRONIC ACID [Concomitant]

REACTIONS (1)
  - Toothache [Not Recovered/Not Resolved]

NARRATIVE: CASE EVENT DATE: 20150218
